FAERS Safety Report 6159913-5 (Version None)
Quarter: 2009Q2

REPORT INFORMATION
  Report Type: 
  Country: None (occurrence: None)
  Receive Date: 20090415
  Receipt Date: 20090331
  Transmission Date: 20091009
  Serious: Yes (Hospitalization)
  Sender: FDA-Public Use
  Company Number: 2009S1005578

PATIENT
  Age: 25 Year
  Sex: Male

DRUGS (1)
  1. PHENYTOIN [Suspect]
     Indication: GRAND MAL CONVULSION
     Dosage: 100 MCG;3 TIMES A DAY

REACTIONS (11)
  - ANOREXIA [None]
  - BLOOD CALCIUM DECREASED [None]
  - CONSTIPATION [None]
  - DYSPNOEA [None]
  - FATIGUE [None]
  - HAEMODIALYSIS [None]
  - HAEMOGLOBIN DECREASED [None]
  - OEDEMA PERIPHERAL [None]
  - SWELLING FACE [None]
  - TUBULOINTERSTITIAL NEPHRITIS [None]
  - VOMITING [None]
